FAERS Safety Report 14804849 (Version 1)
Quarter: 2018Q1

REPORT INFORMATION
  Report Type: Spontaneous
  Country: US (occurrence: US)
  Receive Date: 20180324
  Receipt Date: 20180324
  Transmission Date: 20180509
  Serious: No
  Sender: FDA-Public Use
  Company Number: None

PATIENT
  Age: 38 Year
  Weight: 112.5 kg

DRUGS (3)
  1. KIRKLAND SIGNATURE ALLER TEC ALLERGY [Suspect]
     Active Substance: CETIRIZINE HYDROCHLORIDE
     Indication: URTICARIA
     Dosage: ?          QUANTITY:1 TABLET(S);?
     Route: 048
     Dates: start: 20090101, end: 20180101
  2. ARMOUR THYROID [Concomitant]
     Active Substance: THYROID, PORCINE
  3. TENS DEVICE [Concomitant]

REACTIONS (4)
  - Dizziness [None]
  - Gait disturbance [None]
  - Pruritus [None]
  - Lacrimation increased [None]

NARRATIVE: CASE EVENT DATE: 20180101
